FAERS Safety Report 4750669-7 (Version None)
Quarter: 2005Q3

REPORT INFORMATION
  Report Type: 
  Country: None (occurrence: None)
  Receive Date: 20050823
  Receipt Date: 20050819
  Transmission Date: 20060218
  Serious: Yes (Death, Hospitalization)
  Sender: FDA-Public Use
  Company Number: DE-BRISTOL-MYERS SQUIBB COMPANY-13083910

PATIENT
  Age: 72 Year
  Sex: Male

DRUGS (7)
  1. CISPLATIN [Suspect]
     Indication: SMALL CELL LUNG CANCER STAGE UNSPECIFIED
     Route: 042
     Dates: start: 20050801, end: 20050801
  2. TOPOTECAN HCL [Suspect]
     Indication: SMALL CELL LUNG CANCER STAGE UNSPECIFIED
     Route: 042
     Dates: start: 20050728, end: 20050801
  3. AMPHO-MORONAL [Concomitant]
  4. SPIRIVA [Concomitant]
  5. DEXAMETHASONE [Concomitant]
  6. PANTOPRAZOLE [Concomitant]
  7. RADIOTHERAPY [Concomitant]
     Dates: end: 20050808

REACTIONS (6)
  - BLOOD CREATININE INCREASED [None]
  - DIARRHOEA [None]
  - EXOSTOSIS [None]
  - LEUKOPENIA [None]
  - PYREXIA [None]
  - THROMBOCYTOPENIA [None]
